FAERS Safety Report 22595081 (Version 6)
Quarter: 2024Q4

REPORT INFORMATION
  Report Type: Spontaneous
  Country: US (occurrence: US)
  Receive Date: 20230613
  Receipt Date: 20241213
  Transmission Date: 20250115
  Serious: No
  Sender: DAIICHI
  Company Number: US-DAIICHI SANKYO, INC.-DSU-2023-123655AA

PATIENT
  Sex: Male

DRUGS (2)
  1. TURALIO [Suspect]
     Active Substance: PEXIDARTINIB HYDROCHLORIDE
     Indication: Synovitis
     Dosage: 250 MG, BID
     Route: 048
     Dates: start: 20230517
  2. TURALIO [Suspect]
     Active Substance: PEXIDARTINIB HYDROCHLORIDE
     Indication: Giant cell tumour of tendon sheath

REACTIONS (4)
  - Joint range of motion decreased [Unknown]
  - Therapy cessation [Unknown]
  - Product dose omission in error [Recovered/Resolved]
  - Treatment noncompliance [Unknown]

NARRATIVE: CASE EVENT DATE: 20230101
